FAERS Safety Report 4289457-7 (Version None)
Quarter: 2004Q1

REPORT INFORMATION
  Report Type: 
  Country: None (occurrence: None)
  Receive Date: 20040206
  Receipt Date: 20040206
  Transmission Date: 20041129
  Serious: Yes (Other)
  Sender: FDA-Public Use
  Company Number: None

PATIENT
  Age: 83 Year
  Sex: Male
  Weight: 72.5 kg

DRUGS (9)
  1. NATRECOR [Suspect]
     Indication: CARDIAC FAILURE CONGESTIVE
     Dosage: 2.5 MCG/KG BOLUS IV , 0.01 MCG/KG MIN IV
     Route: 040
     Dates: start: 20031209, end: 20031209
  2. SODIUM BICARB [Concomitant]
  3. LIDOCAINE [Concomitant]
  4. MORPHINE [Concomitant]
  5. CEFUROXIME [Concomitant]
  6. FAMOTIDINE [Concomitant]
  7. REGLAN [Concomitant]
  8. PHENERGAN [Concomitant]
  9. DIGOXIN [Concomitant]

REACTIONS (1)
  - HYPOTENSION [None]
